FAERS Safety Report 17891897 (Version 1)
Quarter: 2020Q2

REPORT INFORMATION
  Report Type: Report from Study
  Country: US (occurrence: US)
  Receive Date: 20200612
  Receipt Date: 20200612
  Transmission Date: 20200714
  Serious: Yes (Death, Hospitalization)
  Sender: FDA-Public Use
  Company Number: US-PFIZER INC-2019-05564

PATIENT
  Age: 53 Year
  Sex: Female
  Weight: 58.7 kg

DRUGS (2)
  1. BINIMETINIB [Suspect]
     Active Substance: BINIMETINIB
     Indication: NON-SMALL CELL LUNG CANCER
     Dosage: 30 MG, BID
     Route: 048
     Dates: start: 20190422, end: 20190505
  2. PALBOCICLIB [Suspect]
     Active Substance: PALBOCICLIB
     Indication: NON-SMALL CELL LUNG CANCER
     Dosage: 125 MG, 1X/DAY
     Route: 048
     Dates: start: 20190422, end: 20190505

REACTIONS (7)
  - Confusional state [Not Recovered/Not Resolved]
  - Neoplasm progression [Fatal]
  - Thrombocytopenia [Not Recovered/Not Resolved]
  - Hypoxia [Not Recovered/Not Resolved]
  - Pulmonary embolism [Not Recovered/Not Resolved]
  - Dyspnoea [Not Recovered/Not Resolved]
  - Epistaxis [Recovered/Resolved]

NARRATIVE: CASE EVENT DATE: 20190507
